FAERS Safety Report 20082159 (Version 1)
Quarter: 2021Q4

REPORT INFORMATION
  Report Type: Spontaneous
  Country: US (occurrence: US)
  Receive Date: 20211117
  Receipt Date: 20211117
  Transmission Date: 20220303
  Serious: No
  Sender: FDA-Public Use
  Company Number: US-SA-SAC20211116000619

PATIENT
  Age: 68 Year
  Sex: Female

DRUGS (2)
  1. SARCLISA [Suspect]
     Active Substance: ISATUXIMAB-IRFC
     Dosage: UNK
  2. CARFILZOMIB [Suspect]
     Active Substance: CARFILZOMIB
     Dosage: UNK

REACTIONS (5)
  - Hypertension [Unknown]
  - Dyspnoea [Unknown]
  - Back pain [Unknown]
  - Ocular hyperaemia [Unknown]
  - Conjunctival hyperaemia [Unknown]
